FAERS Safety Report 10223987 (Version 1)
Quarter: 2014Q2

REPORT INFORMATION
  Report Type: Spontaneous
  Country: US (occurrence: US)
  Receive Date: 20140609
  Receipt Date: 20140609
  Transmission Date: 20141212
  Serious: Yes (Other)
  Sender: FDA-Public Use
  Company Number: US-PFIZER INC-2014155641

PATIENT
  Sex: Male

DRUGS (1)
  1. LYRICA [Suspect]
     Dosage: UNK

REACTIONS (5)
  - Suicide attempt [Unknown]
  - Gait disturbance [Unknown]
  - Fall [Unknown]
  - Speech disorder [Unknown]
  - Feeling abnormal [Not Recovered/Not Resolved]
